FAERS Safety Report 8523780-2 (Version None)
Quarter: 2012Q3

REPORT INFORMATION
  Report Type: 
  Country: None (occurrence: None)
  Receive Date: 20120720
  Receipt Date: 20120713
  Transmission Date: 20120928
  Serious: Yes (Other)
  Sender: FDA-Public Use
  Company Number: DE-ASTELLAS-2012EU005094

PATIENT
  Age: 49 Year
  Sex: Female
  Weight: 46 kg

DRUGS (21)
  1. LASIX [Concomitant]
     Dosage: UNK
     Route: 065
     Dates: start: 20110707, end: 20110723
  2. MORPHIN                            /00036302/ [Concomitant]
     Dosage: UNK
     Route: 065
     Dates: start: 20110714, end: 20110721
  3. GRANISETRON [Concomitant]
     Dosage: UNK
     Route: 065
     Dates: start: 20110701, end: 20110712
  4. MICAFUNGIN INJECTION [Suspect]
     Dosage: 50 MG, UNKNOWN/D
     Route: 065
     Dates: start: 20110701
  5. LEVOFLOXACIN [Concomitant]
     Dosage: UNK
     Route: 065
     Dates: start: 20110701, end: 20110704
  6. RANITIDINE [Concomitant]
     Dosage: UNK
     Route: 065
     Dates: start: 20110708, end: 20110710
  7. ACYCLOVIR [Concomitant]
     Dosage: UNK
     Route: 065
     Dates: start: 20110711
  8. ATG                                /00575401/ [Concomitant]
     Dosage: UNK
     Route: 065
     Dates: start: 20110708, end: 20110710
  9. INSULIN [Concomitant]
     Dosage: UNK
     Route: 065
     Dates: start: 20110715, end: 20110729
  10. PANTOZOL                           /02692601/ [Concomitant]
     Dosage: UNK
     Route: 065
     Dates: start: 20110701
  11. DEXAMETHASONE [Concomitant]
     Dosage: UNK
     Route: 065
     Dates: start: 20110701, end: 20110712
  12. NOREPINEPHRINE BITARTRATE [Concomitant]
     Dosage: UNK
     Route: 065
     Dates: start: 20110704, end: 20110707
  13. MEROPENEM [Concomitant]
     Dosage: UNK
     Route: 065
     Dates: start: 20110708, end: 20110802
  14. MYCOPHENOLATE MOFETIL [Concomitant]
     Dosage: UNK
     Route: 065
     Dates: start: 20110712
  15. TAVEGIL                            /00137201/ [Concomitant]
     Dosage: UNK
     Route: 065
     Dates: start: 20110708, end: 20110710
  16. FORTUM                             /00559701/ [Concomitant]
     Dosage: UNK
     Route: 065
     Dates: start: 20110704, end: 20110708
  17. TARGOCID [Concomitant]
     Dosage: UNK
     Route: 065
     Dates: start: 20110708, end: 20110713
  18. METRONIDAZOL                       /00012501/ [Concomitant]
     Dosage: UNK
     Route: 065
     Dates: start: 20110701, end: 20110704
  19. GENTAMICIN SULFATE [Concomitant]
     Dosage: UNK
     Route: 065
     Dates: start: 20110704, end: 20110708
  20. CYCLOSPORINE [Concomitant]
     Dosage: UNK
     Route: 065
     Dates: start: 20110704
  21. ALLOPURINOL [Concomitant]
     Dosage: UNK
     Route: 065
     Dates: start: 20110701, end: 20110711

REACTIONS (8)
  - PYREXIA [None]
  - RESPIRATORY FAILURE [None]
  - NAUSEA [None]
  - HYPOTONIA [None]
  - SUPRAVENTRICULAR TACHYCARDIA [None]
  - PULMONARY OEDEMA [None]
  - MUCOSAL INFLAMMATION [None]
  - SEPTIC SHOCK [None]
